FAERS Safety Report 5941650-0 (Version None)
Quarter: 2008Q4

REPORT INFORMATION
  Report Type: 
  Country: None (occurrence: None)
  Receive Date: 20081031
  Receipt Date: 20081020
  Transmission Date: 20090506
  Serious: Yes (Death)
  Sender: FDA-Public Use
  Company Number: MPS1-1000111

PATIENT
  Age: 57 Week
  Sex: Male
  Weight: 9.7 kg

DRUGS (1)
  1. ALDURAZYME [Suspect]
     Indication: MUCOPOLYSACCHARIDOSIS I
     Dosage: 0.58 MG/KG, Q2W
     Dates: start: 20080516

REACTIONS (3)
  - CYTOMEGALOVIRUS INFECTION [None]
  - PNEUMONITIS [None]
  - RESPIRATORY FAILURE [None]
